FAERS Safety Report 22347704 (Version 1)
Quarter: 2023Q2

REPORT INFORMATION
  Report Type: Spontaneous
  Country: US (occurrence: US)
  Receive Date: 20230522
  Receipt Date: 20230522
  Transmission Date: 20230722
  Serious: No
  Sender: FDA-Public Use
  Company Number: US-SANOFI-01618619

PATIENT
  Age: 60 Year
  Sex: Female

DRUGS (1)
  1. CEREZYME [Suspect]
     Active Substance: IMIGLUCERASE
     Dosage: UNK
     Dates: end: 20230505

REACTIONS (1)
  - Illness [Unknown]

NARRATIVE: CASE EVENT DATE: 20230501
